FAERS Safety Report 10037746 (Version 1)
Quarter: 2014Q1

REPORT INFORMATION
  Report Type: Spontaneous
  Country: US (occurrence: None)
  Receive Date: 20140306
  Receipt Date: 20140306
  Transmission Date: 20141002
  Serious: Yes (Hospitalization)
  Sender: FDA-Public Use
  Company Number: 163-21880-13080112

PATIENT
  Age: 70 Year
  Sex: Male

DRUGS (9)
  1. REVLIMID [Suspect]
     Indication: PLASMA CELL MYELOMA
     Dosage: 10 MG, 14 IN 14 D, PO - TEMPORARILY INTERRUPTED
     Route: 048
     Dates: start: 20130311
  2. ACYCLOVIR (ACICLOVIR) (UNKNOWN) [Concomitant]
  3. ALLOPURINOL (ALLOPURINOL) (UNKNOWN) [Concomitant]
  4. AMLODIPINE BESYLATE (AMLODIPINE BESILATE) (UNKNOWN) [Concomitant]
  5. ARANESP (ALBUMIN FREE) (DARBEPOETIN ALFA) (UNKNOWN) [Concomitant]
  6. ASPIRIN (ACETYLSALICYLIC ACID) (UNKNOWN) [Concomitant]
  7. BENAZEPRIL HCL (BENAZEPRIL HYDROCHLORIDE) (UNKNOWN) [Concomitant]
  8. CO Q10 (UBIDECARENONE) (UNKNOWN) [Concomitant]
  9. DEXAMETHASONE (DEXAMETHASONE) [Concomitant]

REACTIONS (1)
  - Convulsion [None]
